FAERS Safety Report 20602537 (Version 1)
Quarter: 2022Q1

REPORT INFORMATION
  Report Type: Report from Study
  Country: SE (occurrence: NO)
  Receive Date: 20220316
  Receipt Date: 20220316
  Transmission Date: 20220423
  Serious: Yes (Hospitalization, Other)
  Sender: FDA-Public Use
  Company Number: SE-BTG-201400043

PATIENT
  Age: 14 Year
  Sex: Male
  Weight: 40 kg

DRUGS (8)
  1. VORAXAZE [Suspect]
     Active Substance: GLUCARPIDASE
     Indication: Toxicity to various agents
     Dosage: 2000 UNITS
     Route: 037
     Dates: start: 20140914, end: 20140914
  2. METHOTREXATE [Concomitant]
     Active Substance: METHOTREXATE
     Indication: Product used for unknown indication
     Dosage: 240 MG, UNK
     Route: 037
  3. CYTARABINE [Concomitant]
     Active Substance: CYTARABINE
     Indication: Product used for unknown indication
     Dosage: 30 MG, UNK
     Route: 037
  4. DEXA                               /00008501/ [Concomitant]
     Indication: Toxicity to various agents
     Dosage: 10 MG, UNK
     Route: 065
     Dates: end: 20141001
  5. LEUCOVORIN CALCIUM [Concomitant]
     Active Substance: LEUCOVORIN CALCIUM
     Indication: Toxicity to various agents
     Dosage: UNK
     Route: 065
  6. SODIUM CHLORIDE [Concomitant]
     Active Substance: SODIUM CHLORIDE
     Indication: Cerebrospinal fluid drainage
     Dosage: UNK
     Route: 065
  7. DIAZEPAM [Concomitant]
     Active Substance: DIAZEPAM
     Indication: Toxicity to various agents
     Dosage: 5 MG, UNK
     Route: 065
  8. PHENYTOIN [Concomitant]
     Active Substance: PHENYTOIN
     Indication: Toxicity to various agents
     Dosage: 100 MILLIGRAM
     Route: 065

REACTIONS (8)
  - Arachnoiditis [Recovered/Resolved with Sequelae]
  - Subdural haematoma [Unknown]
  - Neck pain [Unknown]
  - Amnesia [Not Recovered/Not Resolved]
  - Off label use [Unknown]
  - Pyrexia [Unknown]
  - Headache [Recovered/Resolved]
  - Headache [Unknown]

NARRATIVE: CASE EVENT DATE: 20140818
